FAERS Safety Report 15674781 (Version 2)
Quarter: 2019Q1

REPORT INFORMATION
  Report Type: Spontaneous
  Country: JP (occurrence: JP)
  Receive Date: 20181130
  Receipt Date: 20190123
  Transmission Date: 20190417
  Serious: Yes (Death)
  Sender: FDA-Public Use
  Company Number: JP-CLINIGEN GROUP PLC/ CLINIGEN HEALTHCARE LTD-JP-CLGN-18-00488

PATIENT
  Age: 22 Year
  Sex: Male
  Weight: 45 kg

DRUGS (4)
  1. FOSCAVIR [Suspect]
     Active Substance: FOSCARNET SODIUM
     Indication: ENCEPHALITIS VIRAL
     Route: 041
  2. FOSCAVIR [Suspect]
     Active Substance: FOSCARNET SODIUM
     Indication: HUMAN HERPESVIRUS 6 INFECTION
  3. ANTIBIOTICS [Concomitant]
     Active Substance: UNSPECIFIED INGREDIENT
     Indication: PRODUCT USED FOR UNKNOWN INDICATION
  4. PROGRAF [Concomitant]
     Active Substance: TACROLIMUS\TACROLIMUS ANHYDROUS
     Indication: PRODUCT USED FOR UNKNOWN INDICATION

REACTIONS (3)
  - Interstitial lung disease [Fatal]
  - Pulmonary alveolar haemorrhage [Fatal]
  - Off label use [Unknown]
